FAERS Safety Report 6497501-1 (Version None)
Quarter: 2009Q4

REPORT INFORMATION
  Report Type: 
  Country: None (occurrence: None)
  Receive Date: 20091215
  Receipt Date: 20091207
  Transmission Date: 20100525
  Serious: Yes (Hospitalization)
  Sender: FDA-Public Use
  Company Number: JP-BRISTOL-MYERS SQUIBB COMPANY-14828453

PATIENT
  Age: 51 Year
  Sex: Female
  Weight: 77 kg

DRUGS (5)
  1. BARACLUDE [Suspect]
     Indication: HEPATITIS B
     Route: 048
     Dates: start: 20080716
  2. URSO 250 [Concomitant]
     Indication: HEPATITIS B
     Dosage: FORM: TAB.
     Route: 048
     Dates: end: 20080826
  3. VALSARTAN [Concomitant]
     Indication: HYPERTENSION
     Dosage: FORM: TAB.
     Route: 048
  4. AMLODIPINE BESYLATE [Concomitant]
     Indication: HYPERTENSION
     Dosage: FORM: TAB.
     Route: 048
     Dates: end: 20090806
  5. LAFUTIDINE [Concomitant]
     Indication: GASTRITIS
     Dosage: FORM: TAB.
     Route: 048
     Dates: end: 20090801

REACTIONS (5)
  - ASCITES [None]
  - BLOOD ALKALINE PHOSPHATASE INCREASED [None]
  - GAMMA-GLUTAMYLTRANSFERASE INCREASED [None]
  - JAUNDICE [None]
  - PROTHROMBIN TIME SHORTENED [None]
